FAERS Safety Report 10089217 (Version 1)
Quarter: 2014Q2

REPORT INFORMATION
  Report Type: Spontaneous
  Country: AT (occurrence: AT)
  Receive Date: 20140421
  Receipt Date: 20140421
  Transmission Date: 20141212
  Serious: Yes (Hospitalization, Other)
  Sender: FDA-Public Use
  Company Number: AT-JNJFOC-20140407074

PATIENT
  Sex: 0

DRUGS (2)
  1. RISPERIDONE [Suspect]
     Indication: SCHIZOAFFECTIVE DISORDER
     Route: 065
  2. RISPERIDONE [Suspect]
     Indication: SCHIZOPHRENIA
     Route: 065

REACTIONS (15)
  - Acute psychosis [Unknown]
  - Condition aggravated [Unknown]
  - Acute respiratory failure [Unknown]
  - Syncope [Unknown]
  - Cardiac arrest [Unknown]
  - Hypotension [Unknown]
  - Sedation [Unknown]
  - Drug ineffective [Unknown]
  - Treatment noncompliance [Unknown]
  - Anxiety [Unknown]
  - Insomnia [Unknown]
  - Hyperprolactinaemia [Unknown]
  - Asthenia [Unknown]
  - Weight increased [Unknown]
  - Lymphocyte count decreased [Unknown]
